FAERS Safety Report 12828844 (Version 1)
Quarter: 2016Q4

REPORT INFORMATION
  Report Type: Spontaneous
  Country: US (occurrence: US)
  Receive Date: 20161007
  Receipt Date: 20161007
  Transmission Date: 20170207
  Serious: No
  Sender: FDA-Public Use
  Company Number: US-SA-2015SA166911

PATIENT
  Age: 24 Year
  Sex: Female
  Weight: 92.98 kg

DRUGS (1)
  1. AUBAGIO [Suspect]
     Active Substance: TERIFLUNOMIDE
     Indication: MULTIPLE SCLEROSIS
     Route: 048
     Dates: start: 20150818

REACTIONS (3)
  - Headache [Unknown]
  - Amenorrhoea [Unknown]
  - Alopecia [Unknown]
